FAERS Safety Report 9971546 (Version 1)
Quarter: 2014Q1

REPORT INFORMATION
  Report Type: Report from Study
  Country: US (occurrence: US)
  Receive Date: 20140306
  Receipt Date: 20140306
  Transmission Date: 20141002
  Serious: No
  Sender: FDA-Public Use
  Company Number: US-ABBVIE-13P-163-1151021-00

PATIENT
  Sex: Female

DRUGS (10)
  1. HUMIRA [Suspect]
     Indication: RHEUMATOID ARTHRITIS
     Dates: start: 201108
  2. METHOTREXATE [Concomitant]
     Indication: RHEUMATOID ARTHRITIS
     Dosage: 10 MG WEEKLY
  3. TRAMADOL [Concomitant]
     Indication: PAIN
     Dosage: 50MG-200MG
  4. IBUPROFEN [Concomitant]
     Indication: PAIN
  5. FLEXERIL [Concomitant]
     Indication: MYALGIA
  6. LIPITOR [Concomitant]
     Indication: HYPERCHOLESTEROLAEMIA
     Dosage: 40 MG DAILY
  7. LISINOPRIL [Concomitant]
     Indication: HYPERTENSION
     Dosage: 12.5/20
  8. LEVOTHYROXINE [Concomitant]
     Indication: THYROIDECTOMY
     Dosage: 88 MCG DAILY
  9. FOLIC ACID [Concomitant]
     Indication: VITAMIN SUPPLEMENTATION
     Dosage: DAILY
     Route: 048
  10. B12 [Concomitant]
     Indication: VITAMIN SUPPLEMENTATION
     Dosage: DAILY
     Route: 048

REACTIONS (1)
  - Sinusitis [Not Recovered/Not Resolved]
